FAERS Safety Report 19591305 (Version 4)
Quarter: 2023Q4

REPORT INFORMATION
  Report Type: Spontaneous
  Country: US (occurrence: US)
  Receive Date: 20210721
  Receipt Date: 20231206
  Transmission Date: 20240109
  Serious: Yes (Other)
  Sender: FDA-Public Use
  Company Number: US-PFIZER INC-2021861177

PATIENT
  Age: 60 Year
  Sex: Female
  Weight: 124.9 kg

DRUGS (2)
  1. IBRANCE [Suspect]
     Active Substance: PALBOCICLIB
     Indication: Breast cancer female
     Dosage: UNK
     Dates: start: 20210627, end: 20210627
  2. IBRANCE [Suspect]
     Active Substance: PALBOCICLIB
     Dosage: DAILY FOR 21 DAYS THEN OFF FOR SEVEN DAYS
     Route: 048

REACTIONS (1)
  - Device related infection [Unknown]
